FAERS Safety Report 8570436-6 (Version None)
Quarter: 2012Q3

REPORT INFORMATION
  Report Type: 
  Country: None (occurrence: None)
  Receive Date: 20120803
  Receipt Date: 20120716
  Transmission Date: 20120928
  Serious: Yes (Death, Hospitalization, Other)
  Sender: FDA-Public Use
  Company Number: FR-009507513-2012SP035321

PATIENT

DRUGS (25)
  1. ACETAMINOPHEN [Concomitant]
     Dosage: 1000 MG, QD
     Dates: start: 20120412
  2. ISENTRESS [Concomitant]
     Indication: HIV INFECTION
     Dosage: 400 MG, UNK
     Dates: start: 20111107
  3. RALTEGRAVIR [Concomitant]
     Dosage: 400 MG, BID
     Dates: start: 20111107
  4. RALTEGRAVIR [Concomitant]
     Indication: HIV INFECTION
  5. ACETAMINOPHEN [Concomitant]
     Indication: INFLUENZA LIKE ILLNESS
  6. BOCEPREVIR [Suspect]
     Indication: HEPATITIS C
     Dosage: 800 MG, TID
     Dates: start: 20120413, end: 20120622
  7. EMTRIVA [Concomitant]
     Indication: HIV INFECTION
  8. CELLUVISC [Concomitant]
     Indication: XEROSIS
  9. CARBOHYDRATES (UNSPECIFIED) (+) FAT (UNSPECIFIED) (+) MINERALS (UNSPEC [Concomitant]
     Indication: MALNUTRITION
  10. VIREAD [Concomitant]
     Dosage: 245 MG, QOD
     Dates: start: 20120418
  11. MYCOSTER [Concomitant]
     Dosage: 1 DF, QD
     Dates: start: 20120103
  12. CARBOHYDRATES (UNSPECIFIED) (+) FAT (UNSPECIFIED) (+) MINERALS (UNSPEC [Concomitant]
     Dosage: 1 DF, BID
     Dates: start: 20120412
  13. NEORECORMON [Suspect]
     Indication: ANAEMIA
     Dosage: 30000 IU, BIW
     Dates: start: 20120426, end: 20120622
  14. EMTRIVA [Concomitant]
     Dosage: 50 MG, QD
     Dates: start: 20080418
  15. VIREAD [Concomitant]
     Indication: HIV INFECTION
  16. MYCOSTER [Concomitant]
     Indication: ONYCHOMYCOSIS
  17. RIBAVIRIN [Suspect]
     Indication: HEPATITIS C
     Dosage: 800 MG, QD
     Dates: start: 20120316, end: 20120622
  18. CELLUVISC [Concomitant]
     Dosage: 2 DF, QD
     Route: 047
  19. RIBAVIRIN [Suspect]
     Dosage: 600 MG, QD
     Dates: start: 20120607
  20. RIBAVIRIN [Suspect]
     Dosage: 400 MG, QD
     Dates: start: 20120620
  21. DROSPIRENONE AND ETHINYL ESTRADIOL [Concomitant]
     Dosage: 1 DF, QD
     Dates: start: 20120329
  22. DROSPIRENONE AND ETHINYL ESTRADIOL [Concomitant]
     Indication: CONTRACEPTION
  23. PEGINTERFERON ALFA-2B [Suspect]
     Indication: HEPATITIS C
     Dosage: 80 ?G, QW
     Dates: start: 20120316, end: 20120622
  24. DEXERYL TABLETS [Concomitant]
     Dosage: 1 DF, QD
     Dates: start: 20120426
  25. DEXERYL TABLETS [Concomitant]
     Indication: DRY SKIN

REACTIONS (2)
  - HAEMOLYTIC ANAEMIA [None]
  - LUNG DISORDER [None]
